FAERS Safety Report 6808297-5 (Version None)
Quarter: 2010Q2

REPORT INFORMATION
  Report Type: 
  Country: None (occurrence: None)
  Receive Date: 20100629
  Receipt Date: 20090603
  Transmission Date: 20101027
  Serious: Yes (Other)
  Sender: FDA-Public Use
  Company Number: US-PFIZER INC-2009202156

PATIENT
  Sex: Female

DRUGS (14)
  1. ZYVOX [Suspect]
     Indication: STAPHYLOCOCCAL INFECTION
     Route: 048
     Dates: start: 20080101
  2. GEMFIBROZIL [Suspect]
  3. EZETIMIBE [Suspect]
  4. ISOSORBIDE [Suspect]
  5. ACETYLSALICYLIC ACID [Concomitant]
  6. BENICAR [Concomitant]
  7. PRILOSEC [Concomitant]
  8. HYDROCHLOROTHIAZIDE [Concomitant]
  9. CYMBALTA [Concomitant]
  10. PROVIGIL [Concomitant]
  11. TOPROL-XL [Concomitant]
  12. PREMARIN [Concomitant]
  13. PLAVIX [Concomitant]
  14. PLAQUENIL [Concomitant]

REACTIONS (2)
  - DERMATITIS [None]
  - SKIN REACTION [None]
